FAERS Safety Report 25445022 (Version 1)
Quarter: 2025Q2

REPORT INFORMATION
  Report Type: Spontaneous
  Country: US (occurrence: US)
  Receive Date: 20250617
  Receipt Date: 20250617
  Transmission Date: 20250717
  Serious: Yes (Life-Threatening, Other)
  Sender: RANBAXY
  Company Number: US-SUN PHARMACEUTICAL INDUSTRIES INC-2025R1-511999

PATIENT
  Sex: Male

DRUGS (2)
  1. AMLODIPINE [Suspect]
     Active Substance: AMLODIPINE BESYLATE
     Indication: Product used for unknown indication
     Route: 065
  2. LISINOPRIL [Suspect]
     Active Substance: LISINOPRIL
     Indication: Product used for unknown indication

REACTIONS (8)
  - Toxicity to various agents [Unknown]
  - Intentional overdose [Unknown]
  - Acute kidney injury [Unknown]
  - Paranoia [Unknown]
  - Leukocytosis [Unknown]
  - Distributive shock [Unknown]
  - Agitation [Unknown]
  - Delusion [Unknown]
